FAERS Safety Report 8288943-2 (Version None)
Quarter: 2012Q2

REPORT INFORMATION
  Report Type: 
  Country: None (occurrence: None)
  Receive Date: 20120417
  Receipt Date: 20120410
  Transmission Date: 20120825
  Serious: No
  Sender: FDA-Public Use
  Company Number: US-B.I. PHARMACEUTICALS,INC./RIDGEFIELD-2012-BP-03803BP

PATIENT
  Sex: Male

DRUGS (8)
  1. VICODIN [Concomitant]
     Indication: BACK PAIN
     Route: 048
  2. OXYGEN [Concomitant]
     Indication: CHRONIC OBSTRUCTIVE PULMONARY DISEASE
     Route: 055
     Dates: start: 20110101
  3. COUMADIN [Concomitant]
     Indication: THROMBOSIS
     Dosage: 10 MG
     Route: 048
  4. SPIRIVA [Suspect]
     Indication: CHRONIC OBSTRUCTIVE PULMONARY DISEASE
     Dosage: 18 MCG
     Route: 055
     Dates: start: 20110101
  5. OXYGEN [Concomitant]
     Indication: SLEEP APNOEA SYNDROME
  6. ALBUTEROL [Concomitant]
     Indication: ASTHMA
     Route: 055
     Dates: start: 20020101
  7. COUMADIN [Concomitant]
     Dosage: 7 MG
     Route: 048
  8. ADVAIR DISKUS 100/50 [Concomitant]
     Indication: ASTHMA
     Dosage: 2 PUF
     Route: 055
     Dates: start: 20020101

REACTIONS (1)
  - DYSPNOEA [None]
